FAERS Safety Report 20364323 (Version 1)
Quarter: 2022Q1

REPORT INFORMATION
  Report Type: Spontaneous
  Country: US (occurrence: None)
  Receive Date: 20220121
  Receipt Date: 20220121
  Transmission Date: 20220423
  Serious: No
  Sender: FDA-Public Use
  Company Number: None

PATIENT
  Age: 69 Year
  Sex: Male

DRUGS (1)
  1. RIVAROXABAN [Suspect]
     Active Substance: RIVAROXABAN
     Indication: Pulmonary embolism
     Dosage: 15 MG BID PO?
     Route: 048
     Dates: start: 20191211, end: 20200122

REACTIONS (2)
  - Haemorrhage [None]
  - Rash [None]

NARRATIVE: CASE EVENT DATE: 20200122
